FAERS Safety Report 12416791 (Version 1)
Quarter: 2016Q2

REPORT INFORMATION
  Report Type: Spontaneous
  Country: JP (occurrence: JP)
  Receive Date: 20160530
  Receipt Date: 20160530
  Transmission Date: 20160815
  Serious: Yes (Other)
  Sender: FDA-Public Use
  Company Number: JP-PFIZER INC-2016276715

PATIENT

DRUGS (4)
  1. RHEUMATREX [Suspect]
     Active Substance: METHOTREXATE SODIUM
     Dosage: 8 MG, WEEKLY
     Route: 048
  2. FOLIC ACID. [Concomitant]
     Active Substance: FOLIC ACID
     Dosage: 5 MG, WEEKLY
     Route: 048
  3. UFT [Concomitant]
     Active Substance: TEGAFUR\URACIL
     Route: 048
  4. UZEL [Concomitant]
     Active Substance: LEUCOVORIN CALCIUM
     Dosage: 75 MG, DAILY
     Route: 048

REACTIONS (1)
  - Colon cancer [Unknown]
